FAERS Safety Report 6119735-8 (Version None)
Quarter: 2009Q1

REPORT INFORMATION
  Report Type: 
  Country: None (occurrence: None)
  Receive Date: 20090316
  Receipt Date: 20090304
  Transmission Date: 20090719
  Serious: Yes (Hospitalization)
  Sender: FDA-Public Use
  Company Number: US-MERCK-0903USA00047

PATIENT
  Age: 70 Year
  Sex: Male

DRUGS (5)
  1. VYTORIN [Suspect]
     Indication: HYPERCHOLESTEROLAEMIA
     Route: 048
     Dates: start: 20070701
  2. VYTORIN [Suspect]
     Route: 048
     Dates: end: 20081201
  3. ALTACE [Concomitant]
     Route: 065
  4. COREG [Concomitant]
     Route: 065
  5. CLONIDINE [Concomitant]
     Route: 065

REACTIONS (4)
  - CHEST PAIN [None]
  - DRUG INEFFECTIVE [None]
  - MUSCULOSKELETAL CHEST PAIN [None]
  - MYALGIA [None]
